FAERS Safety Report 21898089 (Version 1)
Quarter: 2023Q1

REPORT INFORMATION
  Report Type: Report from Study
  Country: JP (occurrence: JP)
  Receive Date: 20230123
  Receipt Date: 20230123
  Transmission Date: 20230418
  Serious: Yes (Hospitalization)
  Sender: FDA-Public Use
  Company Number: JP-ORPHANEU-2020001182

PATIENT

DRUGS (35)
  1. CYSTADANE [Suspect]
     Active Substance: BETAINE
     Indication: Homocystinuria
     Dosage: 0.65 GRAM DAILY, BID
     Route: 048
     Dates: start: 20151222, end: 20160125
  2. CYSTADANE [Suspect]
     Active Substance: BETAINE
     Dosage: 0.75 GRAM DAILY, BID
     Route: 048
     Dates: start: 20160126, end: 20160222
  3. CYSTADANE [Suspect]
     Active Substance: BETAINE
     Dosage: 1 GRAM DAILY, BID
     Route: 048
     Dates: start: 20160223, end: 20161003
  4. CYSTADANE [Suspect]
     Active Substance: BETAINE
     Dosage: 1.5 GRAM DAILY, BID
     Route: 048
     Dates: start: 20161004, end: 20200217
  5. CYSTADANE [Suspect]
     Active Substance: BETAINE
     Dosage: 2 GRAM DAILY, BID
     Route: 048
     Dates: start: 20200218
  6. ELCARTIN [Concomitant]
     Indication: Homocystinuria
     Dosage: 15 MILLILITER, DIVIDED IN THREE DOSES, TID
     Route: 048
     Dates: start: 20171105
  7. BIOTIN [Concomitant]
     Active Substance: BIOTIN
     Indication: Homocystinuria
     Dosage: 0.1 MILLIGRAM, ONCE DAILY
     Route: 048
     Dates: start: 20151228
  8. LAC-B GRANULAR POWDER N [Concomitant]
     Indication: Disease complication
     Dosage: 1.5 GRAM, TID (BEFORE START OF CYSTADANE)
     Route: 048
     Dates: end: 20170711
  9. LAC-B GRANULAR POWDER N [Concomitant]
     Dosage: 1 GRAM, TID
     Route: 048
     Dates: start: 20170131, end: 20170214
  10. LAC-B GRANULAR POWDER N [Concomitant]
     Dosage: 1 GRAM, TID
     Route: 048
     Dates: start: 20170604, end: 20170621
  11. LAC-B GRANULAR POWDER N [Concomitant]
     Dosage: 1.5 GRAM, TID
     Route: 048
     Dates: start: 20170715, end: 20171029
  12. LAC-B GRANULAR POWDER N [Concomitant]
     Dosage: 1.5 GRAM, TID
     Route: 048
     Dates: start: 20171107
  13. LAC-B GRANULAR POWDER N [Concomitant]
     Dosage: 1.5 GRAM, DIVIDED IN THREE PARTS
     Dates: start: 20180503
  14. FRESMIN S [HYDROXOCOBALAMIN ACETATE] [Concomitant]
     Indication: Product used for unknown indication
     Dosage: 1000 MICROGRAM, QD (BEFORE THE START OF CYSTADANE)
  15. LEVOCARNITINE HYDROCHLORIDE [Concomitant]
     Active Substance: LEVOCARNITINE HYDROCHLORIDE
     Indication: Product used for unknown indication
     Dosage: 750 MILLIGRAM, TID (BEFORE THE START OF CYSTADANE)
     Route: 048
  16. TEGRETOL [Concomitant]
     Active Substance: CARBAMAZEPINE
     Indication: Product used for unknown indication
     Dosage: 25 MILLIGRAM, BID (BEFORE THE START OF CYSTADANE)
     Route: 048
  17. TEGRETOL [Concomitant]
     Active Substance: CARBAMAZEPINE
     Indication: Disease complication
     Dosage: 40 MILLIGRAM, BID (BEFORE THE START OF CYSTADANE)
     Route: 048
     Dates: end: 20160716
  18. TEGRETOL [Concomitant]
     Active Substance: CARBAMAZEPINE
     Dosage: 30 MILLIGRAM, BID
     Route: 048
     Dates: start: 20160717, end: 20160914
  19. TEGRETOL [Concomitant]
     Active Substance: CARBAMAZEPINE
     Dosage: 20 MILLIGRAM, BID
     Route: 048
     Dates: start: 20160915
  20. TEGRETOL [Concomitant]
     Active Substance: CARBAMAZEPINE
     Dosage: 10 MILLIGRAM, QD
     Route: 048
     Dates: start: 20170130, end: 20170208
  21. LEVOCARNITINE [Concomitant]
     Active Substance: LEVOCARNITINE
     Indication: Product used for unknown indication
     Dosage: 7.5 MILLILITER, TID (BEFORE THE START OF CYSTADANE)
     Route: 048
     Dates: end: 20160711
  22. LEVOCARNITINE [Concomitant]
     Active Substance: LEVOCARNITINE
     Dosage: 15 MILLILITER, TID (BEFORE START OF CYSTADANE)
     Route: 048
  23. LEVOCARNITINE [Concomitant]
     Active Substance: LEVOCARNITINE
     Dosage: 10 MILLILITER, TID
     Route: 048
     Dates: start: 20160712, end: 20160914
  24. LEVOCARNITINE [Concomitant]
     Active Substance: LEVOCARNITINE
     Dosage: 15 MILLILITER, TID
     Route: 048
     Dates: start: 20160915, end: 20161220
  25. LEVOCARNITINE [Concomitant]
     Active Substance: LEVOCARNITINE
     Dosage: 5 MILLILITER, QD
     Route: 048
     Dates: start: 20161221
  26. BANAN [Concomitant]
     Active Substance: CEFPODOXIME PROXETIL
     Indication: Disease complication
     Dosage: 70 MILLIGRAM, TID (BEFORE START OF CYSTADANE)
     Route: 048
     Dates: end: 20160624
  27. BANAN [Concomitant]
     Active Substance: CEFPODOXIME PROXETIL
     Dosage: 100 MILLIGRAM, TID
     Route: 048
     Dates: start: 20170712, end: 20170714
  28. BIOTIN [Concomitant]
     Active Substance: BIOTIN
     Indication: Product used for unknown indication
     Dosage: 0.1 MILLILITER, QD (STARTED BEFORE CYSTADANE)
     Route: 048
  29. DIETARY SUPPLEMENT\PROBIOTICS [Concomitant]
     Active Substance: DIETARY SUPPLEMENT\PROBIOTICS
     Indication: Disease complication
     Dosage: 1 GRAM, TID
     Route: 048
     Dates: start: 20170711, end: 20170714
  30. DIETARY SUPPLEMENT\PROBIOTICS [Concomitant]
     Active Substance: DIETARY SUPPLEMENT\PROBIOTICS
     Dosage: 1 GRAM, TID
     Route: 048
     Dates: start: 20171029, end: 20171106
  31. LEVOCARNITINE HYDROCHLORIDE [Concomitant]
     Active Substance: LEVOCARNITINE HYDROCHLORIDE
     Indication: Product used for unknown indication
     Dosage: 15 MILLILITER, TID
     Route: 048
     Dates: start: 20170124, end: 20171102
  32. CARBOCYSTEINE [Concomitant]
     Active Substance: CARBOCYSTEINE
     Indication: Disease complication
     Dosage: 300 MILLIGRAM, BID
     Route: 048
     Dates: start: 20160924, end: 20160930
  33. CARBOCYSTEINE [Concomitant]
     Active Substance: CARBOCYSTEINE
     Dosage: 300 MILLIGRAM, BID
     Route: 048
     Dates: start: 20161219, end: 20161230
  34. PRANLUKAST [Concomitant]
     Active Substance: PRANLUKAST
     Indication: Disease complication
     Dosage: 70 MILLIGRAM, BID
     Route: 048
     Dates: start: 20160924, end: 20160930
  35. AMBROXOL HYDROCHLORIDE [Concomitant]
     Active Substance: AMBROXOL HYDROCHLORIDE
     Indication: Disease complication
     Dosage: 9 MILLIGRAM, TID
     Route: 048
     Dates: start: 20161219, end: 20161230

REACTIONS (1)
  - Vomiting [Recovered/Resolved]

NARRATIVE: CASE EVENT DATE: 20180620
